FAERS Safety Report 6534456-5 (Version None)
Quarter: 2010Q1

REPORT INFORMATION
  Report Type: 
  Country: None (occurrence: None)
  Receive Date: 20100112
  Receipt Date: 20100106
  Transmission Date: 20100710
  Serious: Yes (Hospitalization)
  Sender: FDA-Public Use
  Company Number: US-ELI_LILLY_AND_COMPANY-US201001001670

PATIENT
  Age: 19 Year
  Sex: Male
  Weight: 65.76 kg

DRUGS (4)
  1. HUMALOG [Suspect]
     Indication: DIABETES MELLITUS
     Dosage: UNK, AS NEEDED
     Dates: start: 20050101
  2. HUMALOG [Suspect]
     Dosage: UNK, AS NEEDED
     Dates: start: 20050101
  3. LANTUS [Concomitant]
  4. CAFFEINE [Concomitant]

REACTIONS (10)
  - ARTHRALGIA [None]
  - BLOOD GLUCOSE DECREASED [None]
  - BLOOD GLUCOSE INCREASED [None]
  - DIZZINESS [None]
  - DRUG INEFFECTIVE [None]
  - DYSPNOEA [None]
  - GASTROOESOPHAGEAL REFLUX DISEASE [None]
  - PALLOR [None]
  - VOMITING [None]
  - WEIGHT DECREASED [None]
